FAERS Safety Report 11537902 (Version 1)
Quarter: 2015Q3

REPORT INFORMATION
  Report Type: Spontaneous
  Country: US (occurrence: US)
  Receive Date: 20150922
  Receipt Date: 20150922
  Transmission Date: 20151125
  Serious: Yes (Life-Threatening)
  Sender: FDA-Public Use
  Company Number: US-SA-2015SA031370

PATIENT
  Age: 30 Year
  Sex: Female

DRUGS (1)
  1. TUBERCULIN PPD [Suspect]
     Active Substance: TUBERCULIN PURIFIED PROTEIN DERIVATIVE
     Indication: TUBERCULIN TEST
     Route: 023
     Dates: start: 20150310, end: 20150310

REACTIONS (7)
  - Anaphylactic reaction [Recovered/Resolved]
  - Pruritus [Unknown]
  - Injection site erythema [Unknown]
  - Urticaria [Unknown]
  - Rash [Unknown]
  - Chest discomfort [Unknown]
  - Wheezing [Unknown]

NARRATIVE: CASE EVENT DATE: 20150311
